FAERS Safety Report 12357791 (Version 1)
Quarter: 2016Q2

REPORT INFORMATION
  Report Type: Spontaneous
  Country: US (occurrence: US)
  Receive Date: 20160512
  Receipt Date: 20160512
  Transmission Date: 20160815
  Serious: Yes (Hospitalization)
  Sender: FDA-Public Use
  Company Number: US-009507513-1605USA003562

PATIENT
  Age: 72 Year
  Sex: Male

DRUGS (1)
  1. KEYTRUDA [Suspect]
     Active Substance: PEMBROLIZUMAB
     Indication: NEOPLASM MALIGNANT
     Dosage: 155 MG, ONCE
     Route: 042
     Dates: start: 20160407, end: 20160407

REACTIONS (2)
  - General physical health deterioration [Unknown]
  - Adverse event [Unknown]

NARRATIVE: CASE EVENT DATE: 201604
